FAERS Safety Report 9355075 (Version 1)
Quarter: 2013Q2

REPORT INFORMATION
  Report Type: Spontaneous
  Country: US (occurrence: US)
  Receive Date: 20130619
  Receipt Date: 20130619
  Transmission Date: 20140414
  Serious: Yes (Other)
  Sender: FDA-Public Use
  Company Number: US-JNJCP-30000165130

PATIENT
  Sex: Male
  Weight: 10 kg

DRUGS (2)
  1. NEUTROGENA WET SKIN KIDS SUNBLOCK SPRAY [Suspect]
     Indication: PROPHYLAXIS
     Dosage: APPLIED SPARINGLY, ONCE
     Route: 061
     Dates: start: 20130529, end: 20130529
  2. CHILDRENS BENADRYL-D ALLERGY AND SINUS [Concomitant]
     Indication: FOOD ALLERGY
     Dosage: AS NEEDED, SINCE TWENTY TWO MONTHS

REACTIONS (2)
  - Application site rash [Recovering/Resolving]
  - Asthma [Recovering/Resolving]
